FAERS Safety Report 7898592-3 (Version None)
Quarter: 2011Q4

REPORT INFORMATION
  Report Type: 
  Country: None (occurrence: None)
  Receive Date: 20111107
  Receipt Date: 20111103
  Transmission Date: 20120403
  Serious: Yes (Other)
  Sender: FDA-Public Use
  Company Number: US-BAYER-201026070NA

PATIENT
  Age: 46 Year
  Sex: Female

DRUGS (5)
  1. LOPRESSOR [Concomitant]
     Indication: HYPERTENSION
     Dosage: UNKNOWN
  2. LISINOPRIL [Concomitant]
     Indication: HYPERTENSION
     Dosage: UNK
  3. DIURETICS [Concomitant]
     Indication: HYPERTENSION
     Dosage: UNK
  4. BETASERON [Suspect]
     Indication: RELAPSING-REMITTING MULTIPLE SCLEROSIS
     Dosage: BETAJECT
     Route: 058
     Dates: start: 19941224
  5. BETASERON [Suspect]
     Dosage: 8 MIU, QOD
     Dates: start: 19941229

REACTIONS (2)
  - HYPERTENSION [None]
  - ABDOMINAL PAIN UPPER [None]
